FAERS Safety Report 8421733-6 (Version None)
Quarter: 2012Q2

REPORT INFORMATION
  Report Type: 
  Country: None (occurrence: None)
  Receive Date: 20120608
  Receipt Date: 20120530
  Transmission Date: 20120825
  Serious: Yes (Other)
  Sender: FDA-Public Use
  Company Number: JP-BRISTOL-MYERS SQUIBB COMPANY-16666398

PATIENT
  Age: 56 Year
  Sex: Female

DRUGS (3)
  1. LEVOTHYROXINE SODIUM [Concomitant]
     Dosage: TAB
     Dates: start: 20030723
  2. ARIPIPRAZOLE [Suspect]
     Indication: SCHIZOPHRENIA
     Route: 030
     Dates: start: 20120329, end: 20120524
  3. TRIAZOLAM [Concomitant]
     Dosage: TAB
     Dates: start: 20120329

REACTIONS (1)
  - DELUSION OF REFERENCE [None]
